FAERS Safety Report 12428070 (Version 2)
Quarter: 2016Q2

REPORT INFORMATION
  Report Type: Spontaneous
  Country: US (occurrence: US)
  Receive Date: 20160602
  Receipt Date: 20160602
  Transmission Date: 20160815
  Serious: Yes (Death, Other)
  Sender: FDA-Public Use
  Company Number: US-ACTAVIS-2015-29375

PATIENT
  Sex: Female

DRUGS (4)
  1. GENTAMICIN SULFATE (UNKNOWN) [Suspect]
     Active Substance: GENTAMICIN SULFATE
     Indication: SEPSIS
     Dosage: 5 MG/KG,EVERY 48 HR
     Route: 042
  2. HYDROCORTISONE (AMALLC) [Suspect]
     Active Substance: HYDROCORTISONE
     Indication: PRODUCT USED FOR UNKNOWN INDICATION
     Dosage: 0.25 MG/KG, Q6H
     Route: 042
  3. VECURONIUM BROMIDE (WATSON LABORATORIES) [Suspect]
     Active Substance: VECURONIUM BROMIDE
     Indication: NEUROMUSCULAR BLOCKING THERAPY
     Dosage: 0.1 MG/KG/H
     Route: 042
  4. AMPICILLIN [Concomitant]
     Active Substance: AMPICILLIN
     Indication: SEPSIS
     Dosage: 100 MG/KG, Q12HR
     Route: 042

REACTIONS (3)
  - Acute kidney injury [Fatal]
  - Neuromuscular blockade [Not Recovered/Not Resolved]
  - Toxicity to various agents [Unknown]
